FAERS Safety Report 9456165 (Version 2)
Quarter: 2013Q3

REPORT INFORMATION
  Report Type: Spontaneous
  Country: FR (occurrence: FR)
  Receive Date: 20130813
  Receipt Date: 20130815
  Transmission Date: 20140515
  Serious: Yes (Disabling)
  Sender: FDA-Public Use
  Company Number: FR-ALLERGAN-1311995US

PATIENT
  Age: 86 Year
  Sex: Female

DRUGS (5)
  1. ACULAR [Suspect]
     Indication: ANTIINFLAMMATORY THERAPY
     Dosage: 1 DROP IN THE RIGHT EYE, TWICE A DAY (1 IN THE MORNING, 1 IN THE EVENING)
     Route: 047
     Dates: start: 20130703, end: 20130724
  2. PREVISCAN [Concomitant]
  3. VERAPAMIL [Concomitant]
  4. AMLODIPINE [Concomitant]
  5. ZALDIAR [Concomitant]

REACTIONS (3)
  - Vertigo [Recovered/Resolved]
  - Balance disorder [Recovered/Resolved]
  - Therapeutic response unexpected [Unknown]
